FAERS Safety Report 25369743 (Version 1)
Quarter: 2025Q2

REPORT INFORMATION
  Report Type: Spontaneous
  Country: JP (occurrence: JP)
  Receive Date: 20250528
  Receipt Date: 20250528
  Transmission Date: 20250717
  Serious: Yes (Other)
  Sender: PFIZER
  Company Number: JP-PFIZER INC-PV202500062996

PATIENT
  Sex: Female

DRUGS (2)
  1. GENOTROPIN [Suspect]
     Active Substance: SOMATROPIN
     Route: 058
  2. GENOTROPIN [Suspect]
     Active Substance: SOMATROPIN
     Route: 058
     Dates: start: 2009

REACTIONS (1)
  - Glaucoma [Not Recovered/Not Resolved]
